FAERS Safety Report 5708854-3 (Version None)
Quarter: 2008Q2

REPORT INFORMATION
  Report Type: 
  Country: None (occurrence: None)
  Receive Date: 20080416
  Receipt Date: 20080401
  Transmission Date: 20081010
  Serious: No
  Sender: FDA-Public Use
  Company Number: 002#2#2008-00196

PATIENT
  Age: 70 Year
  Sex: Female
  Weight: 77.1115 kg

DRUGS (6)
  1. NEUPRO [Suspect]
     Indication: RESTLESS LEGS SYNDROME
     Dosage: 2MG/24H, 1 IN 1 D,TRANSDERMAL
     Route: 062
     Dates: start: 20080101, end: 20080101
  2. ARIMIDEX [Concomitant]
  3. BONIVA [Concomitant]
  4. INDERAL [Concomitant]
  5. PREVACID [Concomitant]
  6. REQUIP [Concomitant]

REACTIONS (1)
  - INSOMNIA [None]
